FAERS Safety Report 14573596 (Version 1)
Quarter: 2018Q1

REPORT INFORMATION
  Report Type: Spontaneous
  Country: US (occurrence: US)
  Receive Date: 20180224
  Receipt Date: 20180224
  Transmission Date: 20180509
  Serious: No
  Sender: FDA-Public Use
  Company Number: None

PATIENT
  Sex: Male
  Weight: 23.4 kg

DRUGS (3)
  1. SINGULAIR [Suspect]
     Active Substance: MONTELUKAST SODIUM
     Indication: ASTHMA
     Dosage: ?          QUANTITY:1 TABLET(S);?
     Route: 048
     Dates: start: 20140301, end: 20180224
  2. CLARITIN [Concomitant]
     Active Substance: LORATADINE
  3. ASMANX [Concomitant]

REACTIONS (6)
  - Depression [None]
  - Suicidal ideation [None]
  - Hostility [None]
  - Aggression [None]
  - Anxiety [None]
  - Irritability [None]

NARRATIVE: CASE EVENT DATE: 20160912
